FAERS Safety Report 7589381-8 (Version None)
Quarter: 2011Q3

REPORT INFORMATION
  Report Type: 
  Country: None (occurrence: None)
  Receive Date: 20110705
  Receipt Date: 20110622
  Transmission Date: 20111222
  Serious: Yes (Other)
  Sender: FDA-Public Use
  Company Number: US-ELI_LILLY_AND_COMPANY-US201106007020

PATIENT
  Sex: Female

DRUGS (3)
  1. FLUOXETINE HCL [Concomitant]
     Dosage: 80 MG, UNK
  2. CYMBALTA [Suspect]
     Indication: DEPRESSION
     Dosage: 30 MG, UNK
  3. FLUOXETINE HCL [Concomitant]
     Dosage: 60 MG, UNK

REACTIONS (1)
  - RASH VESICULAR [None]
